FAERS Safety Report 5144171-0 (Version None)
Quarter: 2006Q4

REPORT INFORMATION
  Report Type: 
  Country: None (occurrence: None)
  Receive Date: 20061106
  Receipt Date: 20060818
  Transmission Date: 20070319
  Serious: Yes (Death, Hospitalization)
  Sender: FDA-Public Use
  Company Number: AU-ROCHE-459975

PATIENT
  Age: 79 Year
  Sex: Female

DRUGS (5)
  1. CAPECITABINE [Suspect]
     Dosage: ON DAYS 1-14 EVERY THREE WEEKS. ROUTE AND FREQUERNCY AS PER PROTOCOL
     Route: 048
     Dates: start: 20060727, end: 20060817
  2. BEVACIZUMAB [Suspect]
     Dosage: ROUTE AND FREQUENCY AS PER PROTOCOL
     Route: 042
     Dates: start: 20060727, end: 20060817
  3. CARTIA XT [Concomitant]
     Indication: PROPHYLAXIS
     Route: 048
     Dates: start: 20040615
  4. MONOPLUS [Concomitant]
     Route: 048
     Dates: start: 19940615
  5. TEMAZE [Concomitant]
     Route: 048
     Dates: start: 20060115

REACTIONS (2)
  - CARDIAC ARREST [None]
  - MUCOSAL INFLAMMATION [None]
